FAERS Safety Report 15208916 (Version 1)
Quarter: 2018Q3

REPORT INFORMATION
  Report Type: Spontaneous
  Country: US (occurrence: US)
  Receive Date: 20180727
  Receipt Date: 20180727
  Transmission Date: 20181010
  Serious: No
  Sender: FDA-Public Use
  Company Number: US-IPSEN BIOPHARMACEUTICALS, INC.-2018-10723

PATIENT
  Sex: Female

DRUGS (9)
  1. COQ10 [Concomitant]
     Active Substance: UBIDECARENONE
  2. BENZONATATE. [Concomitant]
     Active Substance: BENZONATATE
  3. XERMELO [Suspect]
     Active Substance: TELOTRISTAT ETHYL
     Indication: CARCINOID TUMOUR OF THE DUODENUM
  4. HYOSYNE [Concomitant]
     Active Substance: HYOSCYAMINE SULFATE
  5. XERMELO [Suspect]
     Active Substance: TELOTRISTAT ETHYL
     Indication: CARCINOID SYNDROME
     Route: 048
     Dates: start: 20180430
  6. SOMATULINE DEPOT [Suspect]
     Active Substance: LANREOTIDE ACETATE
     Indication: PRODUCT USED FOR UNKNOWN INDICATION
     Dosage: NOT REPORTED
     Route: 065
  7. LASIX [Concomitant]
     Active Substance: FUROSEMIDE
  8. VALSARTAN. [Concomitant]
     Active Substance: VALSARTAN
  9. CREON [Concomitant]
     Active Substance: PANCRELIPASE AMYLASE\PANCRELIPASE LIPASE\PANCRELIPASE PROTEASE

REACTIONS (3)
  - Drug dose omission [Unknown]
  - Back pain [Unknown]
  - Abdominal pain [Unknown]

NARRATIVE: CASE EVENT DATE: 2018
